FAERS Safety Report 6980757-6 (Version None)
Quarter: 2010Q3

REPORT INFORMATION
  Report Type: 
  Country: None (occurrence: None)
  Receive Date: 20100914
  Receipt Date: 20100902
  Transmission Date: 20110219
  Serious: Yes (Hospitalization)
  Sender: FDA-Public Use
  Company Number: BR-WATSON-2010-12063

PATIENT
  Age: 32 Year
  Sex: Male

DRUGS (1)
  1. KETOROLAC (WATSON LABORATORIES) [Suspect]
     Indication: PAIN
     Dosage: 10 MG, QID
     Route: 060

REACTIONS (1)
  - PULMONARY HAEMORRHAGE [None]
